FAERS Safety Report 6504856-8 (Version None)
Quarter: 2009Q4

REPORT INFORMATION
  Report Type: 
  Country: None (occurrence: None)
  Receive Date: 20091218
  Receipt Date: 20091209
  Transmission Date: 20100525
  Serious: Yes (Life-Threatening, Hospitalization)
  Sender: FDA-Public Use
  Company Number: SE-JNJFOC-20091203450

PATIENT
  Age: 67 Year
  Sex: Female

DRUGS (10)
  1. REMICADE [Suspect]
     Indication: RHEUMATOID ARTHRITIS
     Route: 042
     Dates: start: 20000101
  2. METHOTREXATE [Suspect]
     Indication: RHEUMATOID ARTHRITIS
  3. PANDEMRIX [Suspect]
     Indication: IMMUNISATION
  4. SYMBICORT FORTE [Concomitant]
     Route: 055
  5. SPIRIVA [Concomitant]
     Route: 055
  6. FELODIPINE [Concomitant]
  7. FOLACIN [Concomitant]
  8. PANACOD [Concomitant]
  9. EVISTA [Concomitant]
  10. CALCICHEW-D3 [Concomitant]
     Route: 048

REACTIONS (7)
  - ADVERSE DRUG REACTION [None]
  - DIZZINESS [None]
  - DYSPNOEA [None]
  - FEELING ABNORMAL [None]
  - INTERSTITIAL LUNG DISEASE [None]
  - PAIN [None]
  - URINE OUTPUT DECREASED [None]
